FAERS Safety Report 5577747-7 (Version None)
Quarter: 2007Q4

REPORT INFORMATION
  Report Type: 
  Country: None (occurrence: None)
  Receive Date: 20071227
  Receipt Date: 20071218
  Transmission Date: 20080405
  Serious: Yes (Hospitalization, Other)
  Sender: FDA-Public Use
  Company Number: 2007SP023795

PATIENT
  Age: 33 Year
  Sex: Female
  Weight: 92.9874 kg

DRUGS (8)
  1. PEG-INTRON (PEGINTERFERON ALFA-2B) [Suspect]
     Indication: HEPATITIS C
     Dosage: SC
     Route: 058
     Dates: start: 20070817, end: 20070901
  2. PEG-INTRON (PEGINTERFERON ALFA-2B) [Suspect]
     Indication: HEPATITIS C
     Dosage: SC
     Route: 058
     Dates: start: 20070101
  3. RIBAVIRIN [Suspect]
     Indication: HEPATITIS C
     Dosage: PO
     Route: 048
     Dates: start: 20070817, end: 20070901
  4. RIBAVIRIN [Suspect]
     Indication: HEPATITIS C
     Dosage: PO
     Route: 048
     Dates: start: 20070101
  5. TRAZODONE HCL [Concomitant]
  6. LEXAPRO [Concomitant]
  7. SEROQUEL [Concomitant]
  8. VALIUM [Concomitant]

REACTIONS (39)
  - ABDOMINAL PAIN UPPER [None]
  - ABSCESS [None]
  - ABSCESS LIMB [None]
  - ALOPECIA [None]
  - ANOREXIA [None]
  - ANXIETY [None]
  - ARTHRALGIA [None]
  - BACK PAIN [None]
  - BACTERIA BLOOD IDENTIFIED [None]
  - BREAST ABSCESS [None]
  - CAUSTIC INJURY [None]
  - CHOLELITHIASIS [None]
  - CYSTITIS [None]
  - DEHYDRATION [None]
  - DEPRESSION [None]
  - DIARRHOEA [None]
  - DISTURBANCE IN ATTENTION [None]
  - DRY MOUTH [None]
  - DRY SKIN [None]
  - DYSGEUSIA [None]
  - DYSPHAGIA [None]
  - DYSPNOEA [None]
  - ERYTHEMA [None]
  - GASTRIC DISORDER [None]
  - HEPATIC PAIN [None]
  - INFLUENZA LIKE ILLNESS [None]
  - INJECTION SITE ERYTHEMA [None]
  - INJECTION SITE SWELLING [None]
  - NAUSEA [None]
  - NEPHROLITHIASIS [None]
  - ORAL INTAKE REDUCED [None]
  - PHARYNGOLARYNGEAL PAIN [None]
  - RASH [None]
  - SKIN BURNING SENSATION [None]
  - TUBERCULOSIS BLADDER [None]
  - URINARY TRACT INFECTION BACTERIAL [None]
  - VOMITING [None]
  - VULVOVAGINAL MYCOTIC INFECTION [None]
  - WEIGHT DECREASED [None]
